FAERS Safety Report 16587736 (Version 1)
Quarter: 2019Q3

REPORT INFORMATION
  Report Type: Spontaneous
  Country: DE (occurrence: DE)
  Receive Date: 20190717
  Receipt Date: 20190717
  Transmission Date: 20191004
  Serious: Yes (Hospitalization)
  Sender: FDA-Public Use
  Company Number: DE-ELI_LILLY_AND_COMPANY-DE201907004993

PATIENT
  Age: 67 Year
  Sex: Male
  Weight: 80 kg

DRUGS (23)
  1. SEVELAMER [Concomitant]
     Active Substance: SEVELAMER
     Indication: PRODUCT USED FOR UNKNOWN INDICATION
     Dosage: 800 MG, OTHER 1-1-1
     Route: 048
  2. CINACALCET. [Concomitant]
     Active Substance: CINACALCET
     Indication: PRODUCT USED FOR UNKNOWN INDICATION
     Dosage: 60 MG, 6/W
     Route: 048
  3. DOXEPIN [Concomitant]
     Active Substance: DOXEPIN
     Indication: PRODUCT USED FOR UNKNOWN INDICATION
     Dosage: 10 MG, OTHER 0-0-0-1
     Route: 048
  4. NITRENDIPIN [Concomitant]
     Active Substance: NITRENDIPINE
     Indication: PRODUCT USED FOR UNKNOWN INDICATION
     Dosage: 5 MG/1ML, B.B. OTHER
     Route: 048
  5. ERYTHROPOIETIN [Concomitant]
     Active Substance: ERYTHROPOIETIN
     Indication: PRODUCT USED FOR UNKNOWN INDICATION
     Dosage: 2000 IE/1ML, UNKNOWN
     Route: 058
  6. PRAMIPEXOLE. [Concomitant]
     Active Substance: PRAMIPEXOLE
     Indication: PRODUCT USED FOR UNKNOWN INDICATION
     Dosage: 0.18 MG, OTHER 0-0-1
     Route: 048
  7. NATRIUMHYDROGENCARBONAT [Concomitant]
     Active Substance: SODIUM BICARBONATE
     Indication: PRODUCT USED FOR UNKNOWN INDICATION
     Dosage: 1 G, OTHER (1-1-1)
     Route: 048
  8. PANTOPRAZOLE [Concomitant]
     Active Substance: PANTOPRAZOLE
     Indication: PRODUCT USED FOR UNKNOWN INDICATION
     Dosage: 40 MG, OTHER 1-0-1
     Route: 048
  9. PANKREATIN [Concomitant]
     Active Substance: PANCRELIPASE
     Indication: PRODUCT USED FOR UNKNOWN INDICATION
     Dosage: UNK UNK, UNKNOWN
     Route: 048
  10. DOMPERIDONE [Concomitant]
     Active Substance: DOMPERIDONE
     Indication: PRODUCT USED FOR UNKNOWN INDICATION
     Dosage: 10 MG, OTHER  0-1-1
     Route: 048
  11. RAMIPRIL. [Concomitant]
     Active Substance: RAMIPRIL
     Indication: PRODUCT USED FOR UNKNOWN INDICATION
     Dosage: 10 MG, OTHER 1-0-0
     Route: 048
  12. INSULIN HUMAN [Suspect]
     Active Substance: INSULIN HUMAN
     Indication: PRODUCT USED FOR UNKNOWN INDICATION
     Dosage: 300 INTERNATIONAL UNIT, OTHER (ACCORDING TO THE SCHEME)
     Route: 058
  13. LEVOTHYROXINE SODIUM. [Concomitant]
     Active Substance: LEVOTHYROXINE SODIUM
     Indication: PRODUCT USED FOR UNKNOWN INDICATION
     Dosage: 150 UG, OTHER 1-0-0
     Route: 048
  14. COLECALCIFEROL [Concomitant]
     Active Substance: CHOLECALCIFEROL
     Indication: PRODUCT USED FOR UNKNOWN INDICATION
     Dosage: 20000 INTERNATIONAL UNIT, OTHER (EVERY 2 WEEKS)
     Route: 048
  15. PROPRANOLOL [Concomitant]
     Active Substance: PROPRANOLOL HYDROCHLORIDE
     Indication: PRODUCT USED FOR UNKNOWN INDICATION
     Dosage: 40 MG, OTHER 1/2-1/2-1/2,
     Route: 048
  16. ZOPICLONE [Concomitant]
     Active Substance: ZOPICLONE
     Indication: PRODUCT USED FOR UNKNOWN INDICATION
     Dosage: 7.5 MG, OTHER B.B
     Route: 048
  17. DOXAZOSIN [Concomitant]
     Active Substance: DOXAZOSIN MESYLATE
     Indication: PRODUCT USED FOR UNKNOWN INDICATION
     Dosage: 4 MG, OTHER 1-0-1
     Route: 048
  18. AMLODIPINE [Concomitant]
     Active Substance: AMLODIPINE BESYLATE
     Indication: PRODUCT USED FOR UNKNOWN INDICATION
     Dosage: 10 MG, OTHER 0-0-1
     Route: 048
  19. CALCITRIOL. [Concomitant]
     Active Substance: CALCITRIOL
     Indication: PRODUCT USED FOR UNKNOWN INDICATION
     Dosage: 0.25 UG, OTHER 2-0-0
     Route: 048
  20. CALCIUMACETAT [Concomitant]
     Active Substance: CALCIUM ACETATE
     Indication: PRODUCT USED FOR UNKNOWN INDICATION
     Dosage: 700 MG, OTHER 2-2-2
     Route: 048
  21. INSULIN GLARGINE [Suspect]
     Active Substance: INSULIN GLARGINE
     Indication: PRODUCT USED FOR UNKNOWN INDICATION
     Dosage: 300 INTERNATIONAL UNIT, OTHER 0-0-2,
     Route: 058
  22. SIMVASTATIN. [Concomitant]
     Active Substance: SIMVASTATIN
     Indication: PRODUCT USED FOR UNKNOWN INDICATION
     Dosage: 20 MG, OTHER 0-0-1
     Route: 048
  23. ACETYLSALICYLSAEURE [Concomitant]
     Active Substance: ASPIRIN
     Indication: PRODUCT USED FOR UNKNOWN INDICATION
     Dosage: 100 MG, OTHER 1-0-0
     Route: 048

REACTIONS (3)
  - Hypoglycaemia [Unknown]
  - Fatigue [Unknown]
  - Loss of consciousness [Unknown]
